FAERS Safety Report 23129149 (Version 1)
Quarter: 2023Q4

REPORT INFORMATION
  Report Type: Other
  Country: None (occurrence: US)
  Receive Date: 20231031
  Receipt Date: 20231031
  Transmission Date: 20240109
  Serious: Yes (Hospitalization)
  Sender: FDA-Public Use
  Company Number: US-Nephron Pharmaceuticals Corporation-2147649

PATIENT
  Age: 50 Year
  Sex: Female

DRUGS (6)
  1. SODIUM CHLORIDE [Suspect]
     Active Substance: SODIUM CHLORIDE
     Indication: Hyponatraemia
  2. SPIRONOLACTONE [Suspect]
     Active Substance: SPIRONOLACTONE
  3. LAMIVUDINE [Concomitant]
     Active Substance: LAMIVUDINE
  4. TENOFOVIR DISOPROXIL FUMARATE [Concomitant]
     Active Substance: TENOFOVIR DISOPROXIL FUMARATE
  5. LOPINAVIR-RITONAVIR [Concomitant]
     Active Substance: LOPINAVIR\RITONAVIR
  6. FUROSEMIDE [Concomitant]
     Active Substance: FUROSEMIDE

REACTIONS (1)
  - Hyperkalaemia [Recovered/Resolved]
